FAERS Safety Report 5293159-8 (Version None)
Quarter: 2007Q2

REPORT INFORMATION
  Report Type: 
  Country: None (occurrence: None)
  Receive Date: 20070411
  Receipt Date: 20070403
  Transmission Date: 20071010
  Serious: Yes (Hospitalization)
  Sender: FDA-Public Use
  Company Number: AT-JNJFOC-20070401041

PATIENT
  Age: 65 Year
  Sex: Female
  Weight: 83 kg

DRUGS (5)
  1. CAELYX [Suspect]
     Indication: OVARIAN CANCER RECURRENT
     Route: 042
     Dates: start: 20070322, end: 20070322
  2. SEROXAL [Concomitant]
     Indication: DEPRESSION
     Route: 048
  3. HYPREN FORTE [Concomitant]
     Indication: HYPERTENSION
     Route: 048
  4. PANTOPRAZOLE SODIUM [Concomitant]
     Indication: PROPHYLAXIS AGAINST GASTROINTESTINAL ULCER
     Route: 048
  5. MIABENE [Concomitant]
     Indication: DEPRESSION
     Route: 048

REACTIONS (5)
  - FLUSHING [None]
  - HYPERTENSION [None]
  - LOCALISED OEDEMA [None]
  - NAUSEA [None]
  - STRIDOR [None]
